FAERS Safety Report 9162500 (Version 2)
Quarter: 2013Q3

REPORT INFORMATION
  Report Type: Spontaneous
  Country: CA (occurrence: None)
  Receive Date: 20130215
  Receipt Date: 20130911
  Transmission Date: 20140515
  Serious: Yes (Other)
  Sender: FDA-Public Use
  Company Number: 2013000023

PATIENT
  Age: 61 Year
  Sex: Male

DRUGS (1)
  1. ACEON (PERIN DOPRIL ERBUMINE) TABLET, 8MG [Suspect]
     Indication: PRODUCT USED FOR UNKNOWN INDICATION
     Dates: start: 2012

REACTIONS (5)
  - Erectile dysfunction [None]
  - Face oedema [None]
  - Swollen tongue [None]
  - Lip swelling [None]
  - Drug ineffective [None]
